FAERS Safety Report 25871361 (Version 1)
Quarter: 2025Q4

REPORT INFORMATION
  Report Type: Spontaneous
  Country: EU (occurrence: EU)
  Receive Date: 20251001
  Receipt Date: 20251001
  Transmission Date: 20260118
  Serious: Yes (Hospitalization, Other)
  Sender: PFIZER
  Company Number: EU-GSK-ES2025EME120860

PATIENT
  Age: 68 Year
  Sex: Female

DRUGS (3)
  1. CARBOPLATIN [Suspect]
     Active Substance: CARBOPLATIN
     Indication: Endometrial cancer
     Dosage: UNK
  2. PACLITAXEL [Suspect]
     Active Substance: PACLITAXEL
     Indication: Endometrial cancer
  3. DOSTARLIMAB [Suspect]
     Active Substance: DOSTARLIMAB
     Indication: Endometrial cancer
     Dosage: 500 MG, Q3W /500 MG 1 VIAL EVERY 3 WEEKS

REACTIONS (4)
  - Adrenal insufficiency [Recovered/Resolved with Sequelae]
  - Sjogren^s syndrome [Recovered/Resolved with Sequelae]
  - Dry mouth [Recovered/Resolved with Sequelae]
  - Off label use [Unknown]
